FAERS Safety Report 6893526-2 (Version None)
Quarter: 2010Q3

REPORT INFORMATION
  Report Type: 
  Country: None (occurrence: None)
  Receive Date: 20100731
  Receipt Date: 20090930
  Transmission Date: 20110219
  Serious: No
  Sender: FDA-Public Use
  Company Number: US-PFIZER INC-2009254930

PATIENT
  Sex: Female

DRUGS (1)
  1. GABAPENTIN [Suspect]
     Indication: PARAESTHESIA
     Dosage: 600 MG, 4X/DAY
     Route: 048

REACTIONS (4)
  - DRUG INEFFECTIVE [None]
  - MOVEMENT DISORDER [None]
  - MUSCLE TIGHTNESS [None]
  - PARAESTHESIA [None]
